FAERS Safety Report 7816015-7 (Version None)
Quarter: 2011Q4

REPORT INFORMATION
  Report Type: 
  Country: None (occurrence: None)
  Receive Date: 20111014
  Receipt Date: 20111001
  Transmission Date: 20120403
  Serious: Yes (Hospitalization)
  Sender: FDA-Public Use
  Company Number: PL-ROCHE-1002452

PATIENT
  Age: 30 Year
  Sex: Male

DRUGS (3)
  1. GANCICLOVIR [Suspect]
     Indication: HIV INFECTION
  2. VORICONAZOLE [Concomitant]
  3. BISEPTOL [Concomitant]

REACTIONS (3)
  - RALES [None]
  - DYSPNOEA [None]
  - RASH [None]
